FAERS Safety Report 7959145-1 (Version None)
Quarter: 2011Q4

REPORT INFORMATION
  Report Type: 
  Country: None (occurrence: None)
  Receive Date: 20111206
  Receipt Date: 20111123
  Transmission Date: 20120403
  Serious: Yes (Other)
  Sender: FDA-Public Use
  Company Number: GB-ELI_LILLY_AND_COMPANY-GB201111007797

PATIENT
  Age: 12 Year
  Sex: Male

DRUGS (2)
  1. STRATTERA [Suspect]
     Indication: ATTENTION DEFICIT/HYPERACTIVITY DISORDER
     Dosage: 80 MG, UNK
  2. SERTRALINE HYDROCHLORIDE [Concomitant]
     Dosage: 60 MG, UNK

REACTIONS (2)
  - PALPITATIONS [None]
  - ELECTROCARDIOGRAM QT PROLONGED [None]
